FAERS Safety Report 8432320-8 (Version None)
Quarter: 2012Q2

REPORT INFORMATION
  Report Type: 
  Country: None (occurrence: None)
  Receive Date: 20120613
  Receipt Date: 20120608
  Transmission Date: 20120825
  Serious: Yes (Other)
  Sender: FDA-Public Use
  Company Number: PHHY2012CA006650

PATIENT
  Sex: Female

DRUGS (1)
  1. GILENYA [Suspect]
     Indication: RELAPSING-REMITTING MULTIPLE SCLEROSIS
     Dosage: 0.5 MG, QD
     Route: 048
     Dates: start: 20120119

REACTIONS (6)
  - BLOOD CREATININE INCREASED [None]
  - HEPATIC ENZYME INCREASED [None]
  - HEADACHE [None]
  - ASPARTATE AMINOTRANSFERASE INCREASED [None]
  - VERTIGO [None]
  - DIZZINESS [None]
